FAERS Safety Report 7841438-X (Version None)
Quarter: 2011Q4

REPORT INFORMATION
  Report Type: 
  Country: None (occurrence: None)
  Receive Date: 20111025
  Receipt Date: 20111013
  Transmission Date: 20120403
  Serious: Yes (Other)
  Sender: FDA-Public Use
  Company Number: US-JNJFOC-20111006624

PATIENT
  Age: 3 Decade
  Sex: Male

DRUGS (2)
  1. REMICADE [Suspect]
     Indication: CROHN'S DISEASE
     Route: 042
     Dates: start: 20090501, end: 20110701
  2. IMURAN [Concomitant]
     Indication: CROHN'S DISEASE
     Route: 065

REACTIONS (3)
  - DYSPHEMIA [None]
  - AMNESIA [None]
  - CROHN'S DISEASE [None]
